FAERS Safety Report 21762633 (Version 2)
Quarter: 2023Q2

REPORT INFORMATION
  Report Type: Report from Study
  Country: US (occurrence: US)
  Receive Date: 20221221
  Receipt Date: 20230413
  Transmission Date: 20230722
  Serious: Yes (Hospitalization, Other)
  Sender: FDA-Public Use
  Company Number: US-PREGISTRY-2022-US-00824

PATIENT

DRUGS (1)
  1. SOTROVIMAB [Suspect]
     Active Substance: SOTROVIMAB
     Indication: COVID-19
     Dosage: UNK UNK, SINGLE
     Route: 064
     Dates: start: 20220321, end: 20220321

REACTIONS (6)
  - Respiratory syncytial virus infection [Recovered/Resolved]
  - Croup infectious [Recovered/Resolved]
  - Streptococcal infection [Unknown]
  - Ear infection [Not Recovered/Not Resolved]
  - Stridor [Unknown]
  - Foetal exposure during pregnancy [Recovered/Resolved]

NARRATIVE: CASE EVENT DATE: 20220321
